FAERS Safety Report 13676521 (Version 1)
Quarter: 2017Q2

REPORT INFORMATION
  Report Type: Spontaneous
  Country: US (occurrence: US)
  Receive Date: 20170622
  Receipt Date: 20170622
  Transmission Date: 20170830
  Serious: No
  Sender: FDA-Public Use
  Company Number: US-ASTRAZENECA-2017SE64137

PATIENT
  Sex: Male
  Weight: 137 kg

DRUGS (5)
  1. MONTELUKAST [Concomitant]
     Active Substance: MONTELUKAST SODIUM
     Indication: HYPERSENSITIVITY
     Route: 048
     Dates: start: 2015
  2. OMEPRAZOLE. [Suspect]
     Active Substance: OMEPRAZOLE
     Indication: GASTROOESOPHAGEAL REFLUX DISEASE
     Route: 048
     Dates: start: 2007
  3. RANITIDINE. [Concomitant]
     Active Substance: RANITIDINE
     Indication: GASTRIC DISORDER
     Route: 048
     Dates: start: 2015
  4. IRDESERTAN HCTZ [Concomitant]
     Indication: HYPERTENSION
     Dosage: FREQUENCY DAILY
     Route: 048
     Dates: start: 2005
  5. PULMICORT FLEXHALER [Suspect]
     Active Substance: BUDESONIDE
     Indication: ASTHMA
     Route: 055
     Dates: start: 2012, end: 2016

REACTIONS (2)
  - Asthma [Not Recovered/Not Resolved]
  - Product quality issue [Unknown]
